FAERS Safety Report 14365161 (Version 1)
Quarter: 2018Q1

REPORT INFORMATION
  Report Type: Spontaneous
  Country: US (occurrence: US)
  Receive Date: 20180108
  Receipt Date: 20180108
  Transmission Date: 20180509
  Serious: No
  Sender: FDA-Public Use
  Company Number: US-ROCHE-1925519

PATIENT
  Age: 2 Year
  Sex: Female
  Weight: 13 kg

DRUGS (1)
  1. ALTEPLASE. [Suspect]
     Active Substance: ALTEPLASE
     Indication: PERIPHERAL ARTERY OCCLUSION
     Dosage: 0.12 MG/KG WAS THEN ADMINISTERED OVER 2 MINUTES AND A CONTINUOUS INFUSION AT 0.5 MG/KG/H FOR AN ADDI
     Route: 042

REACTIONS (2)
  - Treatment failure [Unknown]
  - No adverse event [Unknown]
